FAERS Safety Report 9310170 (Version 1)
Quarter: 2013Q2

REPORT INFORMATION
  Report Type: Spontaneous
  Country: US (occurrence: US)
  Receive Date: 20130527
  Receipt Date: 20130527
  Transmission Date: 20140414
  Serious: No
  Sender: FDA-Public Use
  Company Number: US-009507513-1305USA013380

PATIENT
  Sex: Male
  Weight: 95.24 kg

DRUGS (3)
  1. VICTRELIS [Suspect]
     Dosage: TAKE 4 CAPSULES BY MOUTH THREE TIMES A DAY
     Route: 048
  2. REBETOL [Suspect]
     Route: 048
  3. PEGASYS [Suspect]

REACTIONS (3)
  - Diarrhoea [Recovered/Resolved]
  - Irritability [Unknown]
  - Influenza like illness [Unknown]
